FAERS Safety Report 9230736 (Version 1)
Quarter: 2013Q2

REPORT INFORMATION
  Report Type: Spontaneous
  Country: FR (occurrence: None)
  Receive Date: 20130411
  Receipt Date: 20130411
  Transmission Date: 20140414
  Serious: Yes (Hospitalization)
  Sender: FDA-Public Use
  Company Number: 2013000089

PATIENT
  Age: 81 Year
  Sex: Male

DRUGS (8)
  1. ACEON [Suspect]
     Indication: PRODUCT USED FOR UNKNOWN INDICATION
     Route: 048
     Dates: end: 201301
  2. SPIRONOLACTONE [Suspect]
     Indication: PRODUCT USED FOR UNKNOWN INDICATION
     Dates: end: 20130104
  3. BURINEX [Suspect]
     Indication: PRODUCT USED FOR UNKNOWN INDICATION
     Route: 048
     Dates: end: 20130104
  4. TAHOR (ATORVASTATIN CALCIUM) [Concomitant]
  5. TARDYFERON (FERROUS SULFATE) [Concomitant]
  6. TEMERIT (BEBIVOLOL HYDROCHLORIDE) [Concomitant]
  7. ADENURIC (FEBUXOSTAT) [Concomitant]
  8. IMOVANE (ZOPICLONE) [Concomitant]

REACTIONS (3)
  - General physical health deterioration [None]
  - Renal failure acute [None]
  - Anaemia [None]
